FAERS Safety Report 18590734 (Version 2)
Quarter: 2024Q4

REPORT INFORMATION
  Report Type: Report from Study
  Country: DE (occurrence: DE)
  Receive Date: 20201208
  Receipt Date: 20241016
  Transmission Date: 20250115
  Serious: Yes (Hospitalization)
  Sender: BIOCON
  Company Number: DE-ROCHE-2702070

PATIENT

DRUGS (7)
  1. TRASTUZUMAB [Suspect]
     Active Substance: TRASTUZUMAB
     Indication: Breast cancer
     Dosage: ONGOING DATE OF LAST APPLICATION PRIOR EVENT: 15/OCT/2020
     Route: 065
     Dates: start: 20200803
  2. TRASTUZUMAB [Suspect]
     Active Substance: TRASTUZUMAB
     Dosage: 310 MILLIGRAM, CYCLICAL, ONGOINGDATE OF LAST APPLICATION PRIOR EVENT: 15/OCT/2020
     Route: 065
     Dates: start: 20200803
  3. PERTUZUMAB [Suspect]
     Active Substance: PERTUZUMAB
     Indication: Breast cancer
     Dosage: DATE OF LAST APPLICATION PRIOR EVENT: 15/OCT/2020 ONGOING
     Route: 065
     Dates: start: 20200803
  4. PERTUZUMAB [Suspect]
     Active Substance: PERTUZUMAB
     Dosage: 420 MILLIGRAM, CYCLICAL DATE OF LAST APPLICATION PRIOR EVENT: 15/OCT/2020 ONGOING
     Route: 065
     Dates: start: 20200803
  5. CARBOPLATIN [Suspect]
     Active Substance: CARBOPLATIN
     Indication: Breast cancer
     Dosage: DATE OF LAST APPLICATION PRIOR EVENT: 15/OCT/2020 ONGOING
     Route: 065
     Dates: start: 20200803
  6. CARBOPLATIN [Suspect]
     Active Substance: CARBOPLATIN
     Dosage: 450 MILLIGRAM, CYCLICAL, DATE OF LAST APPLICATION PRIOR EVENT: 15/OCT/2020 ONGOING
     Route: 065
     Dates: start: 20200803
  7. PACLITAXEL [Suspect]
     Active Substance: PACLITAXEL
     Indication: Breast cancer
     Dosage: UNK, CYCLICAL, DATE OF LAST APPLICATION PRIOR EVENT: 15/OCT/2020 ONGOING
     Route: 065
     Dates: start: 20200803

REACTIONS (4)
  - Haematuria [Unknown]
  - Cystitis [Not Recovered/Not Resolved]
  - Urinary tract infection [Unknown]
  - Oropharyngeal candidiasis [Unknown]

NARRATIVE: CASE EVENT DATE: 20201015
